FAERS Safety Report 16716623 (Version 2)
Quarter: 2019Q3

REPORT INFORMATION
  Report Type: Spontaneous
  Country: DE (occurrence: DE)
  Receive Date: 20190819
  Receipt Date: 20190819
  Transmission Date: 20191005
  Serious: Yes (Death, Other)
  Sender: FDA-Public Use
  Company Number: PHHY2019DE041476

PATIENT
  Age: 63 Year
  Sex: Female
  Weight: 50 kg

DRUGS (27)
  1. BUDES N [Suspect]
     Active Substance: BUDESONIDE
     Indication: BRONCHITIS
     Dosage: 0.2 MG, UNK
     Route: 065
  2. PARACETAMOL 1A PHARMA [Suspect]
     Active Substance: ACETAMINOPHEN
     Indication: PRODUCT USED FOR UNKNOWN INDICATION
     Dosage: 500
     Route: 065
  3. CEFUROXIME. [Suspect]
     Active Substance: CEFUROXIME
     Indication: PRODUCT USED FOR UNKNOWN INDICATION
     Dosage: 500
     Route: 065
  4. CEFUROX [Concomitant]
     Active Substance: CEFUROXIME AXETIL
     Indication: COUGH
  5. PIROXICAM. [Concomitant]
     Active Substance: PIROXICAM
     Indication: ARTHRALGIA
     Dosage: UNK
     Route: 065
  6. CLEXANE [Suspect]
     Active Substance: ENOXAPARIN SODIUM
     Indication: PRODUCT USED FOR UNKNOWN INDICATION
     Route: 065
  7. XARELTO [Suspect]
     Active Substance: RIVAROXABAN
     Indication: PRODUCT USED FOR UNKNOWN INDICATION
     Dosage: 15 MG, BID
     Route: 065
  8. CEFUROX [Concomitant]
     Active Substance: CEFUROXIME AXETIL
     Indication: NASOPHARYNGITIS
     Dosage: 500 MG, UNK
     Route: 065
  9. VALSARTAN. [Suspect]
     Active Substance: VALSARTAN
     Indication: PRODUCT USED FOR UNKNOWN INDICATION
     Dosage: 80 MG, MORNING
     Route: 065
  10. MOXIFLOXACIN. [Suspect]
     Active Substance: MOXIFLOXACIN
     Indication: BRONCHITIS
  11. RAMIPRIL 1A PHARMA [Suspect]
     Active Substance: RAMIPRIL
     Indication: PRODUCT USED FOR UNKNOWN INDICATION
     Dosage: 5 MG, UNK
     Route: 065
  12. MONTELAIR HEXAL [Suspect]
     Active Substance: MONTELUKAST SODIUM
     Indication: COUGH
  13. DILTIAZEM STADA [Concomitant]
     Indication: BLOOD PRESSURE INCREASED
     Dosage: 90 MG, UNK
     Route: 065
     Dates: start: 20120117
  14. PANTOPRAZOLE SODIUM. [Suspect]
     Active Substance: PANTOPRAZOLE SODIUM
     Indication: GASTROENTERITIS
     Dosage: 20 MG, UNK
     Route: 065
  15. PANTOPRAZOLE SODIUM. [Suspect]
     Active Substance: PANTOPRAZOLE SODIUM
     Dosage: 40 MG, UNK
     Route: 065
  16. CEFUROXIME SANDOZ [Suspect]
     Active Substance: CEFUROXIME
     Indication: PRODUCT USED FOR UNKNOWN INDICATION
     Dosage: 250 MG, UNK
     Route: 065
  17. MONTELAIR HEXAL [Suspect]
     Active Substance: MONTELUKAST SODIUM
     Indication: BRONCHIAL HYPERREACTIVITY
     Dosage: 10 MG, UNK
     Route: 065
  18. FLOXAL [Concomitant]
     Active Substance: OFLOXACIN
     Indication: CONJUNCTIVITIS
     Route: 065
  19. MCP ABZ [Concomitant]
     Indication: PRODUCT USED FOR UNKNOWN INDICATION
     Dosage: 5 MG/ML, UNK
     Route: 065
  20. XARELTO [Suspect]
     Active Substance: RIVAROXABAN
     Dosage: 20 MG, QD
     Route: 065
  21. DEXA GENTAMICIN [Concomitant]
     Active Substance: DEXAMETHASONE SODIUM PHOSPHATE\GENTAMICIN SULFATE
     Indication: PRODUCT USED FOR UNKNOWN INDICATION
     Dosage: 2.5 G, UNK
     Route: 065
  22. MOXIFLOXACIN. [Suspect]
     Active Substance: MOXIFLOXACIN
     Indication: BRONCHIAL HYPERREACTIVITY
     Dosage: 400 MG, UNK
     Route: 048
  23. DILTIAZEM STADA [Concomitant]
     Indication: HYPERTENSION
  24. PANTOPRAZOLE SODIUM. [Suspect]
     Active Substance: PANTOPRAZOLE SODIUM
     Indication: GASTROOESOPHAGEAL REFLUX DISEASE
     Dosage: 40 MG, UNK
     Route: 065
  25. IBU 1A PHARM [Suspect]
     Active Substance: IBUPROFEN
     Indication: PRODUCT USED FOR UNKNOWN INDICATION
     Dosage: 600 MG, UNK
     Route: 065
  26. DEXA GENTAMICIN [Concomitant]
     Active Substance: DEXAMETHASONE SODIUM PHOSPHATE\GENTAMICIN SULFATE
     Dosage: 5 ML, UNK
     Route: 065
  27. IBU [Concomitant]
     Active Substance: IBUPROFEN
     Indication: PRODUCT USED FOR UNKNOWN INDICATION
     Dosage: 400 MG, TID
     Route: 065

REACTIONS (77)
  - Renal pain [Unknown]
  - Dyspepsia [Unknown]
  - Nausea [Unknown]
  - Shock haemorrhagic [Unknown]
  - Flank pain [Unknown]
  - Acute sinusitis [Unknown]
  - Trismus [Unknown]
  - Drug intolerance [Unknown]
  - Hypersensitivity [Unknown]
  - Deep vein thrombosis [Unknown]
  - Oedema [Unknown]
  - Asthenia [Unknown]
  - Circulatory collapse [Unknown]
  - Bronchial hyperreactivity [Unknown]
  - Pain [Unknown]
  - Breast pain [Unknown]
  - Thrombocytopenia [Fatal]
  - Weight decreased [Fatal]
  - Thinking abnormal [Unknown]
  - Feeling abnormal [Unknown]
  - Nephropathy [Unknown]
  - Fatigue [Unknown]
  - Memory impairment [Unknown]
  - Depersonalisation/derealisation disorder [Unknown]
  - Cardiomyopathy [Unknown]
  - Discharge [Unknown]
  - Peripheral swelling [Unknown]
  - Myalgia [Fatal]
  - Confusional state [Unknown]
  - Flatulence [Unknown]
  - Visual impairment [Unknown]
  - Vitamin D deficiency [Unknown]
  - Chills [Unknown]
  - Productive cough [Unknown]
  - Apathy [Fatal]
  - Disturbance in attention [Unknown]
  - Headache [Unknown]
  - Pancytopenia [Unknown]
  - Retroperitoneal haematoma [Unknown]
  - Venous thrombosis [Unknown]
  - Cough [Unknown]
  - Lymphostasis [Unknown]
  - Malaise [Unknown]
  - Vomiting [Unknown]
  - Arthralgia [Unknown]
  - Photopsia [Unknown]
  - Amaurosis [Unknown]
  - Dizziness [Unknown]
  - Diarrhoea [Unknown]
  - Myocarditis [Unknown]
  - Nasopharyngitis [Unknown]
  - Bronchitis [Unknown]
  - Laryngeal pain [Unknown]
  - Rash [Unknown]
  - Tension headache [Unknown]
  - Performance status decreased [Not Recovered/Not Resolved]
  - Tinnitus [Unknown]
  - Depression [Fatal]
  - Disorientation [Unknown]
  - Soft tissue swelling [Unknown]
  - Conjunctivitis [Unknown]
  - Neck pain [Not Recovered/Not Resolved]
  - Tendonitis [Unknown]
  - Eye swelling [Unknown]
  - Osteoarthritis [Unknown]
  - Pyrexia [Fatal]
  - Muscular weakness [Unknown]
  - Decreased appetite [Unknown]
  - Diplopia [Unknown]
  - Erysipelas [Unknown]
  - Paraesthesia [Unknown]
  - Chest pain [Unknown]
  - Infected bite [Unknown]
  - Renal pain [Unknown]
  - Microsleep [Unknown]
  - Hypophagia [Fatal]
  - Dysphagia [Fatal]

NARRATIVE: CASE EVENT DATE: 201302
